FAERS Safety Report 7764047-X (Version None)
Quarter: 2011Q3

REPORT INFORMATION
  Report Type: 
  Country: None (occurrence: None)
  Receive Date: 20110921
  Receipt Date: 20110915
  Transmission Date: 20111222
  Serious: No
  Sender: FDA-Public Use
  Company Number: US-PFIZER INC-2011219282

PATIENT
  Sex: Male
  Weight: 99.773 kg

DRUGS (1)
  1. LATANOPROST [Suspect]
     Dosage: 1 DROP IN EACH EYE ONCE A DAY
     Dates: start: 20110804, end: 20110101

REACTIONS (1)
  - EYE IRRITATION [None]
